FAERS Safety Report 7635586-7 (Version None)
Quarter: 2011Q3

REPORT INFORMATION
  Report Type: 
  Country: None (occurrence: None)
  Receive Date: 20110726
  Receipt Date: 20110715
  Transmission Date: 20111222
  Serious: Yes (Hospitalization)
  Sender: FDA-Public Use
  Company Number: CA-JNJFOC-20110707250

PATIENT
  Sex: Male

DRUGS (6)
  1. REMICADE [Suspect]
     Route: 042
     Dates: start: 20101001
  2. CALCIUM ACETATE [Concomitant]
  3. CELEXA [Concomitant]
  4. PREDNISONE [Concomitant]
  5. REMICADE [Suspect]
     Indication: CROHN'S DISEASE
     Route: 042
     Dates: start: 20110610
  6. MULTIPLE VITAMINS [Concomitant]

REACTIONS (1)
  - COLECTOMY [None]
